FAERS Safety Report 10478407 (Version 1)
Quarter: 2014Q3

REPORT INFORMATION
  Report Type: Spontaneous
  Country: US (occurrence: US)
  Receive Date: 20140926
  Receipt Date: 20140926
  Transmission Date: 20150326
  Serious: Yes (Other)
  Sender: FDA-Public Use
  Company Number: US-TARO-2013P1019223

PATIENT
  Age: 4 Year
  Sex: Female
  Weight: 14.97 kg

DRUGS (1)
  1. OVIDE [Suspect]
     Active Substance: MALATHION
     Indication: LICE INFESTATION
     Dosage: X1
     Route: 061
     Dates: start: 20130902, end: 20130902

REACTIONS (3)
  - Skin hypopigmentation [Not Recovered/Not Resolved]
  - Thermal burn [Recovering/Resolving]
  - Alopecia [Not Recovered/Not Resolved]

NARRATIVE: CASE EVENT DATE: 20130903
